FAERS Safety Report 4931452-6 (Version None)
Quarter: 2006Q1

REPORT INFORMATION
  Report Type: 
  Country: None (occurrence: None)
  Receive Date: 20060228
  Receipt Date: 20060213
  Transmission Date: 20060701
  Serious: Yes (Other)
  Sender: FDA-Public Use
  Company Number: US-2006-002761

PATIENT
  Age: 30 Year
  Sex: Female

DRUGS (1)
  1. BETASERON [Suspect]
     Indication: MULTIPLE SCLEROSIS
     Dosage: 8 MIU, EVERY 2D, SUBCUTANEOUS
     Route: 058
     Dates: start: 20050615

REACTIONS (4)
  - CHEST INJURY [None]
  - LOSS OF CONSCIOUSNESS [None]
  - TREMOR [None]
  - VOMITING [None]
